FAERS Safety Report 5237723-0 (Version None)
Quarter: 2007Q1

REPORT INFORMATION
  Report Type: 
  Country: None (occurrence: None)
  Receive Date: 20070214
  Receipt Date: 20070202
  Transmission Date: 20070707
  Serious: Yes (Hospitalization, Other)
  Sender: FDA-Public Use
  Company Number: 2007AP00549

PATIENT
  Age: 24635 Day
  Sex: Male

DRUGS (6)
  1. CRESTOR [Suspect]
     Indication: HYPERLIPIDAEMIA
     Route: 048
     Dates: start: 20061023, end: 20061110
  2. TICLOPIDINE HCL [Suspect]
     Indication: CEREBRAL INFARCTION
     Route: 048
     Dates: end: 20061110
  3. BASEN OD [Concomitant]
     Indication: DIABETES MELLITUS
     Route: 048
     Dates: end: 20061110
  4. AMARYL [Concomitant]
     Indication: DIABETES MELLITUS
     Route: 048
     Dates: end: 20061110
  5. DIOVAN [Concomitant]
     Indication: HYPERTENSION
     Route: 048
     Dates: end: 20061110
  6. LIPITOR [Concomitant]

REACTIONS (1)
  - CYSTITIS HAEMORRHAGIC [None]
